FAERS Safety Report 6501325-6 (Version None)
Quarter: 2009Q4

REPORT INFORMATION
  Report Type: 
  Country: None (occurrence: None)
  Receive Date: 20091216
  Receipt Date: 20091210
  Transmission Date: 20100525
  Serious: Yes (Other)
  Sender: FDA-Public Use
  Company Number: B0616075A

PATIENT
  Sex: Female

DRUGS (1)
  1. ALLI [Suspect]
     Dosage: 60MG SINGLE DOSE
     Route: 065

REACTIONS (3)
  - ANXIETY [None]
  - PANIC REACTION [None]
  - PSYCHOTIC DISORDER [None]
